FAERS Safety Report 9869501 (Version 2)
Quarter: 2014Q2

REPORT INFORMATION
  Report Type: Spontaneous
  Country: IT (occurrence: IT)
  Receive Date: 20140205
  Receipt Date: 20140416
  Transmission Date: 20141212
  Serious: Yes (Hospitalization)
  Sender: FDA-Public Use
  Company Number: IT-ROCHE-1344243

PATIENT
  Age: 84 Year
  Sex: Female

DRUGS (4)
  1. DIAZEPAM [Suspect]
     Indication: PSYCHOTIC DISORDER
     Route: 048
     Dates: start: 20140121
  2. AKINETON [Suspect]
     Indication: PSYCHOTIC DISORDER
     Route: 065
     Dates: start: 20140121
  3. TALOFEN [Suspect]
     Indication: PSYCHOTIC DISORDER
     Dosage: 4 G/100 ML
     Route: 048
     Dates: start: 20140121
  4. QUETIAPINA [Suspect]
     Indication: PSYCHOTIC DISORDER
     Route: 048
     Dates: start: 20140121

REACTIONS (1)
  - Sopor [Recovered/Resolved]
